FAERS Safety Report 7311098-5 (Version None)
Quarter: 2011Q1

REPORT INFORMATION
  Report Type: 
  Country: None (occurrence: None)
  Receive Date: 20110224
  Receipt Date: 20110131
  Transmission Date: 20110831
  Serious: No
  Sender: FDA-Public Use
  Company Number: US-B.I. PHARMACEUTICALS,INC./RIDGEFIELD-2011-BP-03156BP

PATIENT
  Sex: Female

DRUGS (9)
  1. GLYPIZIDE [Concomitant]
     Indication: DIABETES MELLITUS
     Dosage: 2.5 MG
     Route: 048
  2. ZOCOR [Concomitant]
     Dosage: 20 MG
     Route: 048
  3. HEMATOGEN [Concomitant]
     Indication: ANAEMIA
     Route: 048
  4. PROLIA [Concomitant]
     Indication: OSTEOPOROSIS
     Route: 048
  5. PRADAXA [Suspect]
     Indication: ATRIAL FIBRILLATION
     Dosage: 150 MG
     Route: 048
     Dates: start: 20101201, end: 20110124
  6. LISINOPRIL [Concomitant]
     Indication: HYPERTENSION
     Dosage: 5 MG
     Route: 048
  7. LANOXIN [Concomitant]
     Indication: ATRIAL FIBRILLATION
     Route: 048
  8. LASIX [Concomitant]
     Indication: PULMONARY CONGESTION
     Dosage: 40 MG
     Route: 048
  9. BISOPROLOL FUMARATE [Concomitant]
     Indication: ATRIAL FIBRILLATION
     Dosage: 5 MG
     Route: 048

REACTIONS (4)
  - PRURITUS GENERALISED [None]
  - HAEMOGLOBIN DECREASED [None]
  - INSOMNIA [None]
  - HAEMORRHAGE [None]
